FAERS Safety Report 16755971 (Version 1)
Quarter: 2019Q3

REPORT INFORMATION
  Report Type: Spontaneous
  Country: FR (occurrence: FR)
  Receive Date: 20190829
  Receipt Date: 20190829
  Transmission Date: 20191005
  Serious: Yes (Hospitalization)
  Sender: FDA-Public Use
  Company Number: FR-MYLANLABS-2019M1080930

PATIENT
  Age: 2 Month
  Sex: Female
  Weight: 4.34 kg

DRUGS (2)
  1. VANCOMYCIN MYLAN [Suspect]
     Active Substance: VANCOMYCIN
     Indication: PYREXIA
     Dosage: 40 MILLIGRAM/KILOGRAM, QD
     Route: 041
     Dates: start: 20150107, end: 20150108
  2. AMIKACINE MYLAN [Suspect]
     Active Substance: AMIKACIN
     Indication: PYREXIA
     Dosage: 15 MILLIGRAM/KILOGRAM, QD
     Route: 041
     Dates: start: 20150107, end: 20150108

REACTIONS (1)
  - Seizure [Recovered/Resolved]

NARRATIVE: CASE EVENT DATE: 20150107
